FAERS Safety Report 14367580 (Version 1)
Quarter: 2018Q1

REPORT INFORMATION
  Report Type: Spontaneous
  Country: US (occurrence: US)
  Receive Date: 20180108
  Receipt Date: 20180108
  Transmission Date: 20180509
  Serious: Yes (Hospitalization)
  Sender: FDA-Public Use
  Company Number: None

PATIENT
  Age: 61 Year
  Sex: Female

DRUGS (13)
  1. POLYETHYLENE GLYCOL [Concomitant]
     Active Substance: POLYETHYLENE GLYCOLS
  2. CARBAMAZEPINE. [Concomitant]
     Active Substance: CARBAMAZEPINE
  3. ESCITALOPRAM OXALATE. [Suspect]
     Active Substance: ESCITALOPRAM OXALATE
  4. TIZANIDINE. [Concomitant]
     Active Substance: TIZANIDINE
  5. DEXILANT [Concomitant]
     Active Substance: DEXLANSOPRAZOLE
  6. BACLOFEN. [Concomitant]
     Active Substance: BACLOFEN
  7. LORAZEPAM. [Concomitant]
     Active Substance: LORAZEPAM
  8. FENTANYL. [Concomitant]
     Active Substance: FENTANYL
  9. TRAMADOL. [Concomitant]
     Active Substance: TRAMADOL
  10. MULTIVITAMIN [Concomitant]
     Active Substance: VITAMINS
  11. OCREVUS [Suspect]
     Active Substance: OCRELIZUMAB
     Indication: MULTIPLE SCLEROSIS
     Dates: start: 20171128
  12. ATORVASTATIN [Concomitant]
     Active Substance: ATORVASTATIN
  13. SPIRONOLACTONE. [Concomitant]
     Active Substance: SPIRONOLACTONE

REACTIONS (1)
  - Skin ulcer [None]

NARRATIVE: CASE EVENT DATE: 20180104
